FAERS Safety Report 4765896-2 (Version None)
Quarter: 2005Q3

REPORT INFORMATION
  Report Type: 
  Country: None (occurrence: None)
  Receive Date: 20050906
  Receipt Date: 20050824
  Transmission Date: 20060218
  Serious: No
  Sender: FDA-Public Use
  Company Number: 2005-132056-NL

PATIENT
  Age: 35 Year
  Sex: Male

DRUGS (6)
  1. VECURONIUM BROMIDE [Suspect]
     Indication: HYPOTONIA
     Dosage: 20 MG ONCE INTRAVENOUS (NOS)
     Route: 042
     Dates: start: 20050809, end: 20050909
  2. PENTANYL CITRATE [Suspect]
     Indication: ANALGESIC EFFECT
     Dosage: 0.05 MG BID INTRAVENOUS (NOS)
     Route: 042
     Dates: start: 20050909, end: 20050909
  3. PROPOFOL [Suspect]
     Indication: ANAESTHESIA
     Dosage: 1200 MG ONCE INTRAVENOUS DRIP
     Route: 041
     Dates: start: 20050809, end: 20050809
  4. CEFAZOLIN SODIUM [Suspect]
     Indication: INFECTION PROPHYLAXIS
     Dosage: 1 G ONCE INTRAVENOUS DRIP
     Route: 041
     Dates: start: 20050809, end: 20050809
  5. FAMOTIDINE [Suspect]
     Indication: ANAESTHETIC PREMEDICATION
     Dosage: 20 MG ONCE INTRAVENOUS DRIP
     Route: 041
     Dates: start: 20050809, end: 20050809
  6. BUPIVACAINE HCL [Suspect]
     Indication: ANAESTHESIA
     Dosage: 25 ML ONCE EPIDURAL
     Route: 008
     Dates: start: 20050809, end: 20050809

REACTIONS (1)
  - HEPATIC FUNCTION ABNORMAL [None]
